FAERS Safety Report 10216739 (Version 1)
Quarter: 2014Q2

REPORT INFORMATION
  Report Type: Spontaneous
  Country: US (occurrence: US)
  Receive Date: 20140604
  Receipt Date: 20140604
  Transmission Date: 20141212
  Serious: Yes (Other)
  Sender: FDA-Public Use
  Company Number: US-PFIZER INC-2014151887

PATIENT
  Age: 58 Year
  Sex: Male

DRUGS (1)
  1. DAYPRO [Suspect]
     Dosage: UNK

REACTIONS (1)
  - Ulcer haemorrhage [Unknown]
